FAERS Safety Report 23727851 (Version 1)
Quarter: 2024Q2

REPORT INFORMATION
  Report Type: Spontaneous
  Country: IT (occurrence: IT)
  Receive Date: 20240410
  Receipt Date: 20240410
  Transmission Date: 20240716
  Serious: Yes (Other)
  Sender: FDA-Public Use
  Company Number: IT-PFM-2024-01748

PATIENT
  Age: 9 Week
  Sex: Male

DRUGS (2)
  1. PREDNISONE [Suspect]
     Active Substance: PREDNISONE
     Indication: Haemangioma
     Dosage: 2 MILLIGRAM/KILOGRAM, QD (2 MG/KG/DAY)
     Route: 065
  2. PROPRANOLOL [Suspect]
     Active Substance: PROPRANOLOL HYDROCHLORIDE
     Indication: Haemangioma
     Dosage: 1 MILLIGRAM/KILOGRAM, QD, (1 MG/KG/DAY )
     Route: 065

REACTIONS (2)
  - Epistaxis [Unknown]
  - Drug ineffective [Unknown]
